FAERS Safety Report 13205612 (Version 1)
Quarter: 2017Q1

REPORT INFORMATION
  Report Type: Spontaneous
  Country: US (occurrence: US)
  Receive Date: 20170207
  Receipt Date: 20170207
  Transmission Date: 20170428
  Serious: Yes (Other)
  Sender: FDA-Public Use
  Company Number: None

PATIENT
  Age: 63 Year
  Sex: Female

DRUGS (1)
  1. ALENDRONATE SODIUM. [Suspect]
     Active Substance: ALENDRONATE SODIUM
     Dosage: ?          QUANTITY:1 TABLET(S);OTHER FREQUENCY:ONCE A WEEK;?
     Route: 048

REACTIONS (5)
  - Musculoskeletal stiffness [None]
  - Pain [None]
  - Muscle spasms [None]
  - Joint stiffness [None]
  - Activities of daily living impaired [None]

NARRATIVE: CASE EVENT DATE: 20170131
